FAERS Safety Report 13342695 (Version 2)
Quarter: 2017Q2

REPORT INFORMATION
  Report Type: Spontaneous
  Country: FR (occurrence: FR)
  Receive Date: 20170316
  Receipt Date: 20170420
  Transmission Date: 20170830
  Serious: Yes (Hospitalization)
  Sender: FDA-Public Use
  Company Number: FR-JNJFOC-20170313716

PATIENT
  Sex: Female

DRUGS (2)
  1. FLUINDIONE [Concomitant]
     Active Substance: FLUINDIONE
     Route: 065
  2. XARELTO [Suspect]
     Active Substance: RIVAROXABAN
     Indication: PRODUCT USED FOR UNKNOWN INDICATION
     Route: 048
     Dates: start: 201702

REACTIONS (2)
  - Skin disorder [Unknown]
  - Asthenia [Not Recovered/Not Resolved]
